FAERS Safety Report 5942772-0 (Version None)
Quarter: 2008Q4

REPORT INFORMATION
  Report Type: 
  Country: None (occurrence: None)
  Receive Date: 20081103
  Receipt Date: 20081022
  Transmission Date: 20090506
  Serious: Yes (Other)
  Sender: FDA-Public Use
  Company Number: 2008-185286-NL

PATIENT
  Age: 50 Year
  Sex: Female

DRUGS (1)
  1. NUVARING [Suspect]
     Indication: CONTRACEPTION
     Dosage: NI, 4 WEEKS CONTINOUSLY
     Dates: start: 20050701

REACTIONS (2)
  - ENDOMETRITIS [None]
  - SMEAR CERVIX ABNORMAL [None]
